FAERS Safety Report 6925956-4 (Version None)
Quarter: 2010Q3

REPORT INFORMATION
  Report Type: 
  Country: None (occurrence: None)
  Receive Date: 20100816
  Receipt Date: 20100805
  Transmission Date: 20110219
  Serious: Yes (Other)
  Sender: FDA-Public Use
  Company Number: BR-PFIZER INC-2010057639

PATIENT
  Age: 68 Year
  Sex: Male

DRUGS (4)
  1. CHAMPIX [Suspect]
     Indication: SMOKING CESSATION THERAPY
     Dosage: UNK
     Route: 048
     Dates: start: 20100507, end: 20100528
  2. CHAMPIX [Suspect]
     Dosage: UNK
     Route: 048
     Dates: start: 20100608, end: 20100101
  3. VALSARTAN [Concomitant]
     Dosage: UNK
     Dates: start: 20100101
  4. SELOZOK [Concomitant]
     Dosage: UNK
     Dates: start: 20100101

REACTIONS (2)
  - HALLUCINATION [None]
  - NERVOUSNESS [None]
